FAERS Safety Report 7309137-0 (Version None)
Quarter: 2011Q1

REPORT INFORMATION
  Report Type: 
  Country: None (occurrence: None)
  Receive Date: 20110223
  Receipt Date: 20110215
  Transmission Date: 20110831
  Serious: Yes (Other)
  Sender: FDA-Public Use
  Company Number: US-PFIZER INC-2010133507

PATIENT
  Sex: Male
  Weight: 102 kg

DRUGS (5)
  1. GABAPENTIN [Concomitant]
     Dosage: UNK
  2. OXYCONTIN [Concomitant]
     Dosage: UNK
  3. CELEBREX [Suspect]
     Indication: BACK PAIN
     Dosage: UNK
     Route: 048
     Dates: start: 20090101, end: 20090101
  4. CHANTIX [Suspect]
     Indication: SMOKING CESSATION THERAPY
     Dosage: UNK
     Route: 048
     Dates: start: 20100101, end: 20100101
  5. XANAX [Concomitant]
     Dosage: UNK

REACTIONS (2)
  - HEPATIC CIRRHOSIS [None]
  - HAEMATOCHEZIA [None]
